FAERS Safety Report 8452991-X (Version None)
Quarter: 2012Q2

REPORT INFORMATION
  Report Type: 
  Country: None (occurrence: None)
  Receive Date: 20120620
  Receipt Date: 20120503
  Transmission Date: 20120825
  Serious: No
  Sender: FDA-Public Use
  Company Number: US-VERTEX PHARMACEUTICALS INC.-AE-2012-006439

PATIENT
  Sex: Female
  Weight: 82.628 kg

DRUGS (8)
  1. METOPROLOL SUCCINATE [Concomitant]
     Route: 048
  2. INCIVEK [Suspect]
     Indication: HEPATITIS C
     Route: 048
     Dates: start: 20120321
  3. DIGOXIN [Concomitant]
     Route: 048
  4. RIBAVIRIN [Concomitant]
     Indication: HEPATITIS C
     Route: 048
     Dates: start: 20120321
  5. SYNTHROID [Concomitant]
     Route: 048
  6. WARFARIN SODIUM [Concomitant]
     Route: 048
  7. SULFAZINE EC [Concomitant]
     Route: 048
  8. PEGASYS [Concomitant]
     Indication: HEPATITIS C
     Route: 058
     Dates: start: 20120321

REACTIONS (6)
  - WEIGHT DECREASED [None]
  - HAEMORRHOIDS [None]
  - DRUG DOSE OMISSION [None]
  - RASH [None]
  - DECREASED APPETITE [None]
  - NAUSEA [None]
